FAERS Safety Report 10149257 (Version 1)
Quarter: 2014Q2

REPORT INFORMATION
  Report Type: Spontaneous
  Country: US (occurrence: None)
  Receive Date: 20140501
  Receipt Date: 20140501
  Transmission Date: 20141212
  Serious: No
  Sender: FDA-Public Use
  Company Number: None

PATIENT
  Age: 56 Year
  Sex: Male
  Weight: 72.58 kg

DRUGS (1)
  1. ERBITUX [Suspect]
     Route: 042

REACTIONS (4)
  - Cardiac arrest [None]
  - Product packaging issue [None]
  - Incorrect dose administered [None]
  - Wrong technique in drug usage process [None]
